FAERS Safety Report 7055872-1 (Version None)
Quarter: 2010Q4

REPORT INFORMATION
  Report Type: 
  Country: None (occurrence: None)
  Receive Date: 20101021
  Receipt Date: 20101011
  Transmission Date: 20110411
  Serious: Yes (Other)
  Sender: FDA-Public Use
  Company Number: GXKR2010GB11499

PATIENT
  Age: 42 Year
  Sex: Male

DRUGS (8)
  1. CODEINE SULFATE [Suspect]
     Indication: BACK PAIN
     Dosage: UNK
     Route: 065
  2. TRAMADOL (NGX) [Suspect]
     Indication: BACK PAIN
     Dosage: UNK
     Route: 065
  3. MORPHINE (NGX) [Suspect]
     Indication: BACK PAIN
     Dosage: TITRATED TO 120 MG/DAY
     Route: 065
  4. ACETYLSALICYLIC ACID SRT [Concomitant]
  5. PROPRANOLOL [Concomitant]
  6. OMEPRAZOLE [Concomitant]
  7. FLUOXETINE [Concomitant]
  8. LOPERAMIDE [Concomitant]

REACTIONS (3)
  - FLUSHING [None]
  - HYPERHIDROSIS [None]
  - SECONDARY HYPOGONADISM [None]
